FAERS Safety Report 20016935 (Version 16)
Quarter: 2023Q4

REPORT INFORMATION
  Report Type: Spontaneous
  Country: CA (occurrence: CA)
  Receive Date: 20211030
  Receipt Date: 20231005
  Transmission Date: 20240110
  Serious: Yes (Other)
  Sender: FDA-Public Use
  Company Number: CA-CELLTRION INC.-2021CA007852

PATIENT

DRUGS (23)
  1. INFLECTRA [Suspect]
     Active Substance: INFLIXIMAB-DYYB
     Indication: Colitis ulcerative
     Dosage: 400MG, INDUCTION DOSES AT WEEK 0, 2 AND 6, THEN EVERY 8 WEEKS
     Route: 042
     Dates: start: 20210322
  2. INFLECTRA [Suspect]
     Active Substance: INFLIXIMAB-DYYB
     Indication: Ankylosing spondylitis
     Dosage: 400MG, 0, 2, 6 THEN EVERY 8 WEEKS
     Route: 042
     Dates: start: 20210405
  3. INFLECTRA [Suspect]
     Active Substance: INFLIXIMAB-DYYB
     Dosage: 400MG,0, 2, 6 THEN EVERY 8 WEEKS
     Route: 042
     Dates: start: 20210514
  4. INFLECTRA [Suspect]
     Active Substance: INFLIXIMAB-DYYB
     Dosage: 500MG, EVERY 6 WEEKS
     Route: 042
     Dates: start: 20210615, end: 20211019
  5. INFLECTRA [Suspect]
     Active Substance: INFLIXIMAB-DYYB
     Dosage: 500MG, EVERY 6 WEEKS
     Route: 042
     Dates: start: 20210727
  6. INFLECTRA [Suspect]
     Active Substance: INFLIXIMAB-DYYB
     Dosage: 500MG, EVERY 6 WEEKS
     Route: 042
     Dates: start: 20210907
  7. INFLECTRA [Suspect]
     Active Substance: INFLIXIMAB-DYYB
     Dosage: 500MG, EVERY 6 WEEKS
     Route: 042
     Dates: start: 20211019
  8. INFLECTRA [Suspect]
     Active Substance: INFLIXIMAB-DYYB
     Dosage: 500MG, EVERY 6 WEEKS
     Route: 042
     Dates: start: 20211019
  9. INFLECTRA [Suspect]
     Active Substance: INFLIXIMAB-DYYB
     Dosage: 500MG, EVERY 6 WEEKS
     Route: 042
     Dates: start: 20211215
  10. INFLECTRA [Suspect]
     Active Substance: INFLIXIMAB-DYYB
     Dosage: 500MG, EVERY 8 WEEKS
     Route: 042
     Dates: start: 20211215
  11. INFLECTRA [Suspect]
     Active Substance: INFLIXIMAB-DYYB
     Dosage: 500MG, EVERY 6 WEEKS
     Route: 042
     Dates: start: 20220208
  12. INFLECTRA [Suspect]
     Active Substance: INFLIXIMAB-DYYB
     Dosage: 500MG, EVERY 8 WEEKS
     Route: 042
     Dates: start: 20220405
  13. INFLECTRA [Suspect]
     Active Substance: INFLIXIMAB-DYYB
     Dosage: 500MG, EVERY 8 WEEKS
     Route: 042
     Dates: start: 20220405
  14. INFLECTRA [Suspect]
     Active Substance: INFLIXIMAB-DYYB
     Dosage: 500MG, EVERY 8 WEEKS
     Route: 042
     Dates: start: 20220531
  15. INFLECTRA [Suspect]
     Active Substance: INFLIXIMAB-DYYB
     Dosage: 500MG, EVERY 8 WEEKS
     Route: 042
     Dates: start: 20220721
  16. INFLECTRA [Suspect]
     Active Substance: INFLIXIMAB-DYYB
     Dosage: 500MG, EVERY 8 WEEKS
     Route: 042
     Dates: start: 20221108
  17. INFLECTRA [Suspect]
     Active Substance: INFLIXIMAB-DYYB
     Dosage: 500 MG, EVERY 8 WEEKS
     Route: 042
     Dates: start: 20230307, end: 20230307
  18. ENTYVIO [Concomitant]
     Active Substance: VEDOLIZUMAB
     Dosage: UNK
  19. MIRVALA 21 [Concomitant]
     Dosage: UNK, DOSAGE NOT AVAILABLE
  20. MIRVALA 21 [Concomitant]
     Dosage: 1 DF, DOSAGE NOT AVAILABLE
     Route: 065
  21. CETIRIZINE HYDROCHLORIDE [Concomitant]
     Active Substance: CETIRIZINE HYDROCHLORIDE
     Dosage: UNK, DOSAGE NOT AVAILABLE
     Route: 065
  22. CETIRIZINE HYDROCHLORIDE [Concomitant]
     Active Substance: CETIRIZINE HYDROCHLORIDE
     Dosage: 1 DF, DOSAGE NOT AVAILABLE
     Route: 065
  23. MESALAMINE [Concomitant]
     Active Substance: MESALAMINE
     Dosage: UNK

REACTIONS (22)
  - Cellulitis [Recovered/Resolved]
  - Condition aggravated [Recovered/Resolved]
  - Urinary tract infection [Recovered/Resolved]
  - Abdominal discomfort [Unknown]
  - Pollakiuria [Unknown]
  - Upper respiratory tract infection [Not Recovered/Not Resolved]
  - Pain [Not Recovered/Not Resolved]
  - COVID-19 [Recovered/Resolved]
  - Headache [Not Recovered/Not Resolved]
  - Fatigue [Unknown]
  - Pharyngitis streptococcal [Recovered/Resolved]
  - Psoriasis [Not Recovered/Not Resolved]
  - Head discomfort [Unknown]
  - Lymphadenitis [Not Recovered/Not Resolved]
  - Allodynia [Unknown]
  - Nausea [Not Recovered/Not Resolved]
  - Pyrexia [Unknown]
  - Nasopharyngitis [Unknown]
  - Herpes zoster [Recovering/Resolving]
  - Illness [Unknown]
  - Musculoskeletal stiffness [Not Recovered/Not Resolved]
  - Back pain [Not Recovered/Not Resolved]

NARRATIVE: CASE EVENT DATE: 20210101
